FAERS Safety Report 18975807 (Version 2)
Quarter: 2021Q2

REPORT INFORMATION
  Report Type: Spontaneous
  Country: US (occurrence: US)
  Receive Date: 20210305
  Receipt Date: 20210505
  Transmission Date: 20210717
  Serious: Yes (Hospitalization, Other)
  Sender: FDA-Public Use
  Company Number: US-HORIZON THERAPEUTICS-HZN-2021-000518

PATIENT

DRUGS (1)
  1. ACTIMMUNE [Suspect]
     Active Substance: INTERFERON GAMMA-1B
     Indication: PRODUCT USED FOR UNKNOWN INDICATION
     Dosage: 100 UG, INJECTION,3 TIMES PER WEEK
     Route: 065

REACTIONS (8)
  - COVID-19 pneumonia [Unknown]
  - Somnolence [Not Recovered/Not Resolved]
  - Irritability [Unknown]
  - Drug ineffective [Unknown]
  - Aspergillus infection [Unknown]
  - Injection site pain [Unknown]
  - Infection [Unknown]
  - Myalgia [Unknown]

NARRATIVE: CASE EVENT DATE: 2020
